FAERS Safety Report 8044045-1 (Version None)
Quarter: 2012Q1

REPORT INFORMATION
  Report Type: 
  Country: None (occurrence: None)
  Receive Date: 20120113
  Receipt Date: 20120109
  Transmission Date: 20120608
  Serious: Yes (Hospitalization)
  Sender: FDA-Public Use
  Company Number: US-JNJFOC-20120102642

PATIENT
  Sex: Male

DRUGS (10)
  1. DOXORUBICIN HCL [Suspect]
     Route: 042
     Dates: start: 20111031
  2. DOXORUBICIN HCL [Suspect]
     Route: 042
     Dates: start: 20111103
  3. VELCADE [Suspect]
     Route: 042
     Dates: start: 20110916
  4. VELCADE [Suspect]
     Route: 042
     Dates: start: 20111103
  5. DOXORUBICIN HCL [Suspect]
     Indication: MULTIPLE MYELOMA
     Route: 042
     Dates: start: 20111107
  6. VELCADE [Suspect]
     Route: 042
     Dates: start: 20111031
  7. DEXAMETHASONE TAB [Suspect]
     Route: 065
     Dates: start: 20111103
  8. DEXAMETHASONE TAB [Suspect]
     Route: 065
     Dates: start: 20111031
  9. VELCADE [Suspect]
     Indication: MULTIPLE MYELOMA
     Route: 042
     Dates: start: 20111107
  10. DEXAMETHASONE TAB [Suspect]
     Indication: MULTIPLE MYELOMA
     Route: 065
     Dates: start: 20111107

REACTIONS (3)
  - PNEUMONIA [None]
  - INFECTED SKIN ULCER [None]
  - ANGIOPATHY [None]
